FAERS Safety Report 18394919 (Version 3)
Quarter: 2020Q4

REPORT INFORMATION
  Report Type: Spontaneous
  Country: US (occurrence: US)
  Receive Date: 20201016
  Receipt Date: 20201109
  Transmission Date: 20210114
  Serious: Yes (Other)
  Sender: FDA-Public Use
  Company Number: US-SA-2020SA284305

PATIENT

DRUGS (2)
  1. TOUJEO [Suspect]
     Active Substance: INSULIN GLARGINE
     Indication: TYPE 2 DIABETES MELLITUS
     Dosage: DOSE VARIES, QD (NIGHT)
     Route: 065
  2. TOUJEO [Suspect]
     Active Substance: INSULIN GLARGINE
     Dosage: 32 IU (NIGHT)
     Route: 065
     Dates: start: 20201011

REACTIONS (3)
  - Drug ineffective [Unknown]
  - Diabetic retinal oedema [Unknown]
  - Diabetes mellitus inadequate control [Unknown]

NARRATIVE: CASE EVENT DATE: 202010
